FAERS Safety Report 12564620 (Version 1)
Quarter: 2016Q3

REPORT INFORMATION
  Report Type: Spontaneous
  Country: US (occurrence: None)
  Receive Date: 20160715
  Receipt Date: 20160715
  Transmission Date: 20161109
  Serious: Yes (Life-Threatening, Hospitalization, Disabling)
  Sender: FDA-Public Use
  Company Number: None

PATIENT
  Age: 55 Year
  Sex: Male
  Weight: 136.08 kg

DRUGS (6)
  1. RISPERDAL CONSTA [Suspect]
     Active Substance: RISPERIDONE
     Indication: PSYCHOTIC DISORDER
     Dates: start: 20041024
  2. ATIVAN [Concomitant]
     Active Substance: LORAZEPAM
  3. FISH OIL [Concomitant]
     Active Substance: FISH OIL
  4. LISINOPRIL. [Concomitant]
     Active Substance: LISINOPRIL
  5. METOPROLOL. [Concomitant]
     Active Substance: METOPROLOL
  6. TYLENOL [Concomitant]
     Active Substance: ACETAMINOPHEN

REACTIONS (10)
  - Testicular swelling [None]
  - Scrotal disorder [None]
  - Paranoia [None]
  - Libido decreased [None]
  - Erythema [None]
  - Increased appetite [None]
  - Back pain [None]
  - Tremor [None]
  - Injection site pain [None]
  - Feeling hot [None]

NARRATIVE: CASE EVENT DATE: 200410
